FAERS Safety Report 19840642 (Version 4)
Quarter: 2022Q1

REPORT INFORMATION
  Report Type: Report from Study
  Country: CA (occurrence: CA)
  Receive Date: 20210916
  Receipt Date: 20220323
  Transmission Date: 20220423
  Serious: Yes (Hospitalization)
  Sender: FDA-Public Use
  Company Number: CA-JNJFOC-20210923924

PATIENT
  Age: 13 Year
  Sex: Female
  Weight: 59.1 kg

DRUGS (2)
  1. REMICADE [Suspect]
     Active Substance: INFLIXIMAB
     Indication: Juvenile idiopathic arthritis
     Route: 042
     Dates: start: 20180628
  2. REMICADE [Suspect]
     Active Substance: INFLIXIMAB
     Dosage: V3- THERAPY START DATE- 24-SEP-2018. PATIENT LAST INFUSION ON 06-JAN-2022
     Route: 042
     Dates: start: 20190411

REACTIONS (4)
  - Hospitalisation [Unknown]
  - Off label use [Unknown]
  - Product use in unapproved indication [Unknown]
  - Product dose omission issue [Unknown]

NARRATIVE: CASE EVENT DATE: 20190411
